FAERS Safety Report 5956415-3 (Version None)
Quarter: 2008Q4

REPORT INFORMATION
  Report Type: 
  Country: None (occurrence: None)
  Receive Date: 20081114
  Receipt Date: 20081114
  Transmission Date: 20090506
  Serious: Yes (Other)
  Sender: FDA-Public Use
  Company Number: None

PATIENT
  Sex: Female
  Weight: 72.1219 kg

DRUGS (1)
  1. FOSAMAX [Suspect]
     Dosage: 70MG 1 PER WK

REACTIONS (2)
  - DYSPNOEA [None]
  - RASH [None]
